FAERS Safety Report 6795853-6 (Version None)
Quarter: 2010Q2

REPORT INFORMATION
  Report Type: 
  Country: None (occurrence: None)
  Receive Date: 20100625
  Receipt Date: 20100618
  Transmission Date: 20101027
  Serious: Yes (Hospitalization)
  Sender: FDA-Public Use
  Company Number: A0866819A

PATIENT
  Age: 48 Year
  Sex: Male

DRUGS (1)
  1. AVANDAMET [Suspect]
     Dosage: 1TAB TWICE PER DAY
     Dates: start: 20060928, end: 20070723

REACTIONS (1)
  - MYOCARDIAL INFARCTION [None]
